FAERS Safety Report 7718120-2 (Version None)
Quarter: 2011Q3

REPORT INFORMATION
  Report Type: 
  Country: None (occurrence: None)
  Receive Date: 20110830
  Receipt Date: 20110822
  Transmission Date: 20111222
  Serious: Yes (Other)
  Sender: FDA-Public Use
  Company Number: BR-JNJFOC-20110804347

PATIENT
  Age: 48 Year
  Sex: Male

DRUGS (1)
  1. REMICADE [Suspect]
     Indication: ANKYLOSING SPONDYLITIS
     Route: 042
     Dates: start: 20030101

REACTIONS (5)
  - EPISCLERITIS [None]
  - PERITONSILLAR ABSCESS [None]
  - UVEITIS [None]
  - BENIGN PROSTATIC HYPERPLASIA [None]
  - INFLAMMATORY PAIN [None]
